FAERS Safety Report 4332529-9 (Version None)
Quarter: 2004Q2

REPORT INFORMATION
  Report Type: 
  Country: None (occurrence: None)
  Receive Date: 20040401
  Receipt Date: 20040317
  Transmission Date: 20050107
  Serious: Yes (Hospitalization)
  Sender: FDA-Public Use
  Company Number: S04-NLD-01317-01

PATIENT
  Age: 51 Year
  Sex: Male

DRUGS (2)
  1. CITALOPRAM HYDROBROMIDE [Suspect]
     Indication: DYSTHYMIC DISORDER
     Dosage: 20 MG QD PO
     Route: 048
     Dates: start: 20030703
  2. EFFEXOR [Suspect]
     Dosage: 75 MG QD PO
     Route: 048
     Dates: start: 20021113, end: 20030703

REACTIONS (3)
  - COLONIC OBSTRUCTION [None]
  - DISEASE RECURRENCE [None]
  - SUBILEUS [None]
